FAERS Safety Report 9803659 (Version 1)
Quarter: 2014Q1

REPORT INFORMATION
  Report Type: Spontaneous
  Country: US (occurrence: US)
  Receive Date: 20140108
  Receipt Date: 20140108
  Transmission Date: 20141002
  Serious: No
  Sender: FDA-Public Use
  Company Number: US-GLAXOSMITHKLINE-A1020652A

PATIENT
  Sex: Male

DRUGS (2)
  1. LOVAZA [Suspect]
     Indication: VISUAL IMPAIRMENT
     Route: 065
     Dates: start: 2011
  2. NO CONCURRENT MEDICATION [Concomitant]

REACTIONS (3)
  - Therapeutic response unexpected [Not Recovered/Not Resolved]
  - Off label use [Unknown]
  - Product quality issue [Unknown]
